FAERS Safety Report 4998430-2 (Version None)
Quarter: 2006Q2

REPORT INFORMATION
  Report Type: 
  Country: None (occurrence: None)
  Receive Date: 20060510
  Receipt Date: 20060503
  Transmission Date: 20061013
  Serious: Yes (Death, Life-Threatening, Disabling)
  Sender: FDA-Public Use
  Company Number: US-GLAXOSMITHKLINE-A0604212A

PATIENT
  Age: 32 Year
  Sex: Female

DRUGS (6)
  1. LAMICTAL [Suspect]
     Indication: BIPOLAR DISORDER
     Route: 048
     Dates: start: 20060303
  2. CAFFEINE [Concomitant]
  3. ALCOHOL [Concomitant]
  4. PROZAC [Concomitant]
  5. CYMBALTA [Concomitant]
  6. CITALOPRAM HYDROBROMIDE [Concomitant]
     Route: 048

REACTIONS (6)
  - COMPLETED SUICIDE [None]
  - DRUG LEVEL DECREASED [None]
  - EXTRAPYRAMIDAL DISORDER [None]
  - LABORATORY TEST INTERFERENCE [None]
  - MUSCULOSKELETAL STIFFNESS [None]
  - TREMOR [None]
